FAERS Safety Report 4832715-5 (Version None)
Quarter: 2005Q4

REPORT INFORMATION
  Report Type: 
  Country: None (occurrence: None)
  Receive Date: 20051117
  Receipt Date: 20051109
  Transmission Date: 20060501
  Serious: Yes (Hospitalization)
  Sender: FDA-Public Use
  Company Number: EWC051147168

PATIENT
  Age: 59 Year
  Sex: Female
  Weight: 84 kg

DRUGS (2)
  1. GEMZAR [Suspect]
     Indication: LUNG NEOPLASM MALIGNANT
     Dosage: 1250 MG/M2/2 OTHER
     Route: 050
     Dates: start: 20050509
  2. CISPLATIN [Suspect]
     Indication: LUNG NEOPLASM MALIGNANT
     Dosage: 80 MG/M2/1 OTHER
     Route: 050
     Dates: start: 20050509

REACTIONS (4)
  - ANAEMIA [None]
  - METRORRHAGIA [None]
  - NEUTROPENIA [None]
  - PLATELET COUNT DECREASED [None]
